FAERS Safety Report 6693372-9 (Version None)
Quarter: 2010Q2

REPORT INFORMATION
  Report Type: 
  Country: None (occurrence: None)
  Receive Date: 20100420
  Receipt Date: 20100409
  Transmission Date: 20101027
  Serious: Yes (Life-Threatening, Hospitalization)
  Sender: FDA-Public Use
  Company Number: 231153J10USA

PATIENT
  Age: 61 Year
  Sex: Male

DRUGS (1)
  1. REBIF [Suspect]
     Indication: MULTIPLE SCLEROSIS
     Dosage: 44 MCG, 3 IN 1 WK, SUBCUTANEOUS
     Route: 058
     Dates: start: 20091202

REACTIONS (11)
  - ASTHENIA [None]
  - BLOOD DISORDER [None]
  - CARDIAC FAILURE [None]
  - CLOSTRIDIAL INFECTION [None]
  - DEPRESSION [None]
  - DIABETES MELLITUS [None]
  - ENTEROCOCCAL INFECTION [None]
  - FLUID RETENTION [None]
  - PANCREATITIS [None]
  - PNEUMONIA [None]
  - PULMONARY OEDEMA [None]
